FAERS Safety Report 19814810 (Version 1)
Quarter: 2021Q3

REPORT INFORMATION
  Report Type: Spontaneous
  Country: AR (occurrence: AR)
  Receive Date: 20210910
  Receipt Date: 20210910
  Transmission Date: 20211014
  Serious: Yes (Other)
  Sender: FDA-Public Use
  Company Number: AR-PFIZER INC-202101128059

PATIENT
  Age: 57 Year
  Sex: Female

DRUGS (3)
  1. SUTENT [Suspect]
     Active Substance: SUNITINIB MALATE
     Indication: METASTATIC RENAL CELL CARCINOMA
     Dosage: 50 MG
  2. SUTENT [Suspect]
     Active Substance: SUNITINIB MALATE
     Dosage: 25 MG, CYCLIC (DAILY, SCHEME 2/1 REST)
     Dates: start: 20210312, end: 20210823
  3. SUTENT [Suspect]
     Active Substance: SUNITINIB MALATE
     Dosage: LOWER DOSE, 7 DAYS ON AND 7 DAYS REST

REACTIONS (4)
  - Stomatitis [Not Recovered/Not Resolved]
  - Diabetes mellitus [Not Recovered/Not Resolved]
  - Off label use [Unknown]
  - Product use issue [Unknown]
